FAERS Safety Report 7599510-8 (Version None)
Quarter: 2011Q3

REPORT INFORMATION
  Report Type: 
  Country: None (occurrence: None)
  Receive Date: 20110711
  Receipt Date: 20090930
  Transmission Date: 20111222
  Serious: Yes (Hospitalization, Other)
  Sender: FDA-Public Use
  Company Number: US-BAYER-200935085NA

PATIENT
  Age: 45 Year
  Sex: Male
  Weight: 70.748 kg

DRUGS (13)
  1. AMOXICILLIN [Concomitant]
     Dosage: 875 MG, UNK
     Route: 048
  2. TRASYLOL [Suspect]
     Indication: PRODUCT USED FOR UNKNOWN INDICATION
     Dosage: 1 ML, TEST DOSE, 100 ML LOADING DOSE, 50 ML/HR INFUSION DOSE.
     Route: 042
     Dates: start: 20051206, end: 20051206
  3. METHADONE HCL [Concomitant]
     Dosage: 80 MG, EVERY MORNING, 40 MG EVERY EVENING
     Route: 048
  4. OXYCODONE HCL [Concomitant]
     Dosage: 5/325 MG
     Route: 048
  5. BIAXIN [Concomitant]
     Route: 048
  6. VERSED [Concomitant]
     Dosage: UNK
     Route: 042
     Dates: start: 20051206
  7. RED BLOOD CELLS [Concomitant]
     Dosage: 2 U, ONCE
     Route: 042
     Dates: start: 20051206
  8. TRASYLOL [Suspect]
     Indication: MITRAL VALVE REPLACEMENT
  9. FENTANYL [Concomitant]
     Dosage: UNK
     Route: 042
     Dates: start: 20051206, end: 20051206
  10. LISINOPRIL [Concomitant]
     Dosage: 5 MG, UNK
  11. PROTAMINE SULFATE [Concomitant]
     Dosage: 400 MG, UNK
     Route: 042
     Dates: start: 20051206
  12. ALPRAZOLAM [Concomitant]
     Dosage: 0.5 MG, UNK
     Route: 048
  13. SUFENTANIL CITRATE [Concomitant]
     Dosage: UNK
     Route: 042
     Dates: start: 20051206

REACTIONS (11)
  - ANXIETY [None]
  - PAIN [None]
  - INJURY [None]
  - EMOTIONAL DISTRESS [None]
  - UNEVALUABLE EVENT [None]
  - RENAL FAILURE [None]
  - RENAL INJURY [None]
  - DEPRESSION [None]
  - RENAL IMPAIRMENT [None]
  - STRESS [None]
  - FEAR [None]
